FAERS Safety Report 17444002 (Version 1)
Quarter: 2020Q1

REPORT INFORMATION
  Report Type: Spontaneous
  Country: DE (occurrence: DE)
  Receive Date: 20200221
  Receipt Date: 20200221
  Transmission Date: 20200409
  Serious: Yes (Other)
  Sender: FDA-Public Use
  Company Number: DE-US-PROVELL PHARMACEUTICALS LLC-E2B_90074860

PATIENT
  Sex: Female

DRUGS (1)
  1. EUTHYROX [Suspect]
     Active Substance: LEVOTHYROXINE SODIUM
     Indication: PRODUCT USED FOR UNKNOWN INDICATION
     Dates: start: 201912, end: 202002

REACTIONS (6)
  - Tremor [Recovering/Resolving]
  - Throat irritation [Not Recovered/Not Resolved]
  - Throat tightness [Unknown]
  - Hyperhidrosis [Unknown]
  - Herpes pharyngitis [Unknown]
  - Allergic reaction to excipient [Unknown]
